FAERS Safety Report 9825366 (Version 1)
Quarter: 2014Q1

REPORT INFORMATION
  Report Type: Spontaneous
  Country: US (occurrence: US)
  Receive Date: 20140117
  Receipt Date: 20140117
  Transmission Date: 20141002
  Serious: No
  Sender: FDA-Public Use
  Company Number: US-PFIZER INC-2014014896

PATIENT
  Age: 75 Year
  Sex: Male
  Weight: 79.82 kg

DRUGS (4)
  1. XANAX [Suspect]
     Indication: ERECTILE DYSFUNCTION
     Dosage: UNK
     Dates: end: 2013
  2. VIAGRA [Interacting]
     Indication: ERECTILE DYSFUNCTION
     Dosage: UNK
     Dates: end: 2013
  3. CITALOPRAM [Interacting]
     Indication: ANTIDEPRESSANT THERAPY
     Dosage: 40 MG, DAILY
  4. CIALIS [Interacting]
     Indication: ERECTILE DYSFUNCTION
     Dosage: 20 MG, UNK
     Dates: end: 2013

REACTIONS (1)
  - Drug interaction [Unknown]
